FAERS Safety Report 15301396 (Version 1)
Quarter: 2018Q3

REPORT INFORMATION
  Report Type: Spontaneous
  Country: US (occurrence: US)
  Receive Date: 20180809
  Receipt Date: 20180809
  Transmission Date: 20181010
  Serious: Yes (Other)
  Sender: FDA-Public Use
  Company Number: None

PATIENT
  Age: 37 Year
  Sex: Female
  Weight: 54 kg

DRUGS (6)
  1. MULTIVITAMIN MIX [Concomitant]
  2. BOTOX COSMETIC [Suspect]
     Active Substance: ONABOTULINUMTOXINA
     Dates: start: 20180709, end: 20180726
  3. OMEGA [Concomitant]
     Active Substance: CONVALLARIA MAJALIS\CRATAEGUS LAEVIGATA LEAF\PROXYPHYLLINE
  4. LAMISIL [Concomitant]
     Active Substance: TERBINAFINE HYDROCHLORIDE
  5. ADAPTOGENIC HERBS FOR STRESS [Concomitant]
  6. TRACE MINERALS [Concomitant]

REACTIONS (8)
  - Dry eye [None]
  - Palpitations [None]
  - Depression [None]
  - Dizziness [None]
  - Decreased interest [None]
  - Diplopia [None]
  - Dyspnoea [None]
  - Anxiety [None]

NARRATIVE: CASE EVENT DATE: 20180727
